FAERS Safety Report 20495456 (Version 2)
Quarter: 2022Q1

REPORT INFORMATION
  Report Type: Report from Study
  Country: FR (occurrence: FR)
  Receive Date: 20220221
  Receipt Date: 20220301
  Transmission Date: 20220423
  Serious: Yes (Hospitalization)
  Sender: FDA-Public Use
  Company Number: FR-SERVIER-S22001601

PATIENT

DRUGS (6)
  1. PEGASPARGASE [Suspect]
     Active Substance: PEGASPARGASE
     Indication: Acute lymphocytic leukaemia
     Dosage: 2400 IU, D8, D36, D64 NOT DONE
     Route: 042
     Dates: start: 20220104, end: 20220206
  2. UNSPECIFIED INGREDIENT [Suspect]
     Active Substance: UNSPECIFIED INGREDIENT
     Indication: Acute lymphocytic leukaemia
     Dosage: 1.45 MG, D1, D8, D29, D36
     Route: 042
     Dates: start: 20211228
  3. UNSPECIFIED INGREDIENT [Suspect]
     Active Substance: UNSPECIFIED INGREDIENT
     Indication: Acute lymphocytic leukaemia
     Dosage: 6 MG, D1 TO D5, D29 TO D33
     Route: 048
     Dates: start: 20211228, end: 20220128
  4. UNSPECIFIED INGREDIENT [Suspect]
     Active Substance: UNSPECIFIED INGREDIENT
     Indication: Acute lymphocytic leukaemia
     Dosage: 50 MG, D1 TO D21, D29 TO D49
     Route: 048
     Dates: start: 20211228, end: 20220214
  5. UNSPECIFIED INGREDIENT [Suspect]
     Active Substance: UNSPECIFIED INGREDIENT
     Indication: Acute lymphocytic leukaemia
     Dosage: 25 MG,D8, D15, D22, D36, D43, D50
     Route: 048
     Dates: start: 20211228, end: 20220215
  6. UNSPECIFIED INGREDIENT [Suspect]
     Active Substance: UNSPECIFIED INGREDIENT
     Dosage: 12 MG, D2, D30
     Route: 037
     Dates: start: 20211229, end: 20220125

REACTIONS (2)
  - Urinary retention [Not Recovered/Not Resolved]
  - Peripheral motor neuropathy [Not Recovered/Not Resolved]

NARRATIVE: CASE EVENT DATE: 20220206
